FAERS Safety Report 7618280-8 (Version None)
Quarter: 2011Q3

REPORT INFORMATION
  Report Type: 
  Country: None (occurrence: None)
  Receive Date: 20110718
  Receipt Date: 20110706
  Transmission Date: 20111222
  Serious: Yes (Death, Life-Threatening, Hospitalization, Other)
  Sender: FDA-Public Use
  Company Number: JP-ROCHE-726637

PATIENT
  Sex: Female
  Weight: 35 kg

DRUGS (17)
  1. ERBITUX [Suspect]
     Indication: COLON CANCER METASTATIC
     Route: 041
     Dates: start: 20091124, end: 20100413
  2. FLUOROURACIL [Concomitant]
     Dosage: DOSAGE IS UNCERTAIN
     Route: 040
     Dates: start: 20100510
  3. FLUOROURACIL [Concomitant]
     Dosage: DOSAGE IS UNCERTAIN
     Route: 041
     Dates: start: 20090629, end: 20091101
  4. FLUOROURACIL [Concomitant]
     Dosage: DOSAGE IS UNCERTAIN
     Route: 041
     Dates: start: 20100510
  5. AVASTIN [Suspect]
     Route: 041
     Dates: start: 20090629, end: 20091109
  6. AVASTIN [Suspect]
     Route: 041
     Dates: start: 20100510, end: 20100827
  7. OXALIPLATIN [Concomitant]
     Dosage: DOSAGE IS UNCERTAIN
     Route: 041
     Dates: start: 20100510
  8. FLUOROURACIL [Concomitant]
     Dosage: DOSAGE IS UNCERTAIN
     Route: 040
     Dates: start: 20090212, end: 20090521
  9. FLUOROURACIL [Concomitant]
     Dosage: DOSAGE IS UNCERTAIN.
     Route: 040
     Dates: start: 20090629, end: 20091109
  10. IRINOTECAN HCL [Concomitant]
     Dosage: DOSAGE IS UNCERTAIN
     Route: 041
     Dates: start: 20090629, end: 20091109
  11. AVASTIN [Suspect]
     Indication: COLON CANCER METASTATIC
     Route: 041
     Dates: start: 20090212, end: 20090521
  12. FLUOROURACIL [Concomitant]
     Dosage: DOSAGE IS UNCERTAIN
     Route: 041
     Dates: start: 20090212, end: 20090501
  13. LEUCOVORIN CALCIUM [Concomitant]
     Dosage: DOSAGE IS UNCERTAIN
     Route: 041
     Dates: start: 20090212, end: 20090501
  14. LEUCOVORIN CALCIUM [Concomitant]
     Dosage: DOSAGE IS UNCERTAIN
     Route: 041
     Dates: start: 20100510
  15. IRINOTECAN HCL [Concomitant]
     Dosage: DOSAGE IS UNCERTAIN
     Route: 041
     Dates: start: 20091124, end: 20100413
  16. OXALIPLATIN [Concomitant]
     Dosage: DOSAGE IS UNCERTAIN
     Route: 041
     Dates: start: 20090212, end: 20090521
  17. LEUCOVORIN CALCIUM [Concomitant]
     Dosage: DOSAGE IS UNCERTAIN
     Route: 041
     Dates: start: 20090629, end: 20091109

REACTIONS (5)
  - LARGE INTESTINE PERFORATION [None]
  - DISSEMINATED INTRAVASCULAR COAGULATION [None]
  - DISEASE PROGRESSION [None]
  - DERMATITIS ACNEIFORM [None]
  - INFECTIOUS PERITONITIS [None]
